FAERS Safety Report 8010240-0 (Version None)
Quarter: 2011Q4

REPORT INFORMATION
  Report Type: 
  Country: None (occurrence: None)
  Receive Date: 20111221
  Receipt Date: 20111209
  Transmission Date: 20120403
  Serious: Yes (Hospitalization)
  Sender: FDA-Public Use
  Company Number: 2011SP057834

PATIENT
  Age: 12 Year
  Sex: Male

DRUGS (4)
  1. DESLORATADINE [Suspect]
     Indication: PHARYNGITIS
     Dosage: 5 MG;QPM;PO
     Route: 048
     Dates: start: 20111114, end: 20111117
  2. ACETAMINOPHEN [Suspect]
     Indication: PYREXIA
     Dosage: 500 MG;QID;PO
     Route: 048
     Dates: start: 20111114, end: 20111120
  3. CEFPODOXIME PROXETIL [Suspect]
     Indication: PHARYNGITIS
     Dosage: 100 MG;BID;PO
     Route: 048
     Dates: start: 20111114, end: 20111117
  4. ACETYLCYSTEINE [Suspect]
     Indication: PHARYNGITIS
     Dosage: 200 MG;TID;PO
     Route: 048
     Dates: start: 20111114, end: 20111117

REACTIONS (2)
  - STOMATITIS [None]
  - ERYTHEMA MULTIFORME [None]
